FAERS Safety Report 6389941-6 (Version None)
Quarter: 2009Q4

REPORT INFORMATION
  Report Type: 
  Country: None (occurrence: None)
  Receive Date: 20091006
  Receipt Date: 20090526
  Transmission Date: 20100525
  Serious: No
  Sender: FDA-Public Use
  Company Number: US-BRISTOL-MYERS SQUIBB COMPANY-14628275

PATIENT
  Age: 70 Year
  Sex: Male

DRUGS (2)
  1. AVAPRO [Suspect]
     Indication: HYPERTENSION
     Dates: start: 20080530
  2. AMLODIPINE [Suspect]
     Indication: HYPERTENSION
     Dates: start: 20081104

REACTIONS (3)
  - CHROMATURIA [None]
  - OCULAR ICTERUS [None]
  - RASH [None]
